FAERS Safety Report 10911118 (Version 2)
Quarter: 2015Q1

REPORT INFORMATION
  Report Type: Report from Study
  Country: BR (occurrence: BR)
  Receive Date: 20150312
  Receipt Date: 20150317
  Transmission Date: 20150721
  Serious: Yes (Hospitalization, Other)
  Sender: FDA-Public Use
  Company Number: BR-ABBVIE-15K-020-1357704-00

PATIENT
  Sex: Female
  Weight: 55 kg

DRUGS (7)
  1. REVANGE [Concomitant]
     Indication: PAIN
     Route: 048
     Dates: start: 20150211
  2. MUSCULARE (BENZAPRINE HYDROCHORIDE) [Concomitant]
     Indication: MYALGIA
     Route: 048
     Dates: start: 20150102
  3. HUMIRA [Suspect]
     Active Substance: ADALIMUMAB
     Indication: RHEUMATOID ARTHRITIS
     Route: 058
     Dates: start: 2011
  4. POLYVITAMIN [Concomitant]
     Active Substance: VITAMINS
     Indication: PRODUCT USED FOR UNKNOWN INDICATION
     Dates: start: 2003
  5. PURAN [Concomitant]
     Active Substance: LEVOTHYROXINE SODIUM
     Indication: HYPOTHYROIDISM
     Dosage: EVERY MORNING IN FASTING
  6. VITAMIN D [Concomitant]
     Active Substance: CHOLECALCIFEROL
     Indication: PRODUCT USED FOR UNKNOWN INDICATION
     Dates: start: 2003
  7. HUMIRA [Suspect]
     Active Substance: ADALIMUMAB
     Route: 058

REACTIONS (7)
  - Osteoarthritis [Recovering/Resolving]
  - Ligament pain [Recovering/Resolving]
  - Myalgia [Unknown]
  - Limb deformity [Recovering/Resolving]
  - Gait disturbance [Recovering/Resolving]
  - Hyperkeratosis [Recovered/Resolved]
  - Pain [Unknown]
